FAERS Safety Report 24885242 (Version 2)
Quarter: 2025Q1

REPORT INFORMATION
  Report Type: Spontaneous
  Country: ZA (occurrence: ZA)
  Receive Date: 20250124
  Receipt Date: 20250127
  Transmission Date: 20250409
  Serious: Yes (Life-Threatening, Hospitalization)
  Sender: EISAI
  Company Number: ZA-Eisai-EC-2025-182869

PATIENT
  Age: 67 Year
  Sex: Female
  Weight: 64 kg

DRUGS (4)
  1. HALAVEN [Suspect]
     Active Substance: ERIBULIN MESYLATE
     Indication: Breast cancer metastatic
     Route: 042
     Dates: start: 20250117, end: 20250117
  2. GRANTRYL [Concomitant]
     Indication: Product used for unknown indication
     Route: 042
     Dates: start: 20250117, end: 20250117
  3. TAGALON [Concomitant]
     Indication: Product used for unknown indication
     Route: 042
     Dates: start: 20250117, end: 20250117
  4. EURODRON [Concomitant]
     Indication: Product used for unknown indication
     Route: 042
     Dates: start: 20250117, end: 20250117

REACTIONS (1)
  - Myocardial infarction [Recovering/Resolving]

NARRATIVE: CASE EVENT DATE: 20250117
